FAERS Safety Report 18164397 (Version 1)
Quarter: 2020Q3

REPORT INFORMATION
  Report Type: Spontaneous
  Country: DE (occurrence: DE)
  Receive Date: 20200818
  Receipt Date: 20200818
  Transmission Date: 20201103
  Serious: Yes (Other)
  Sender: FDA-Public Use
  Company Number: DE-PFIZER INC-2020315602

PATIENT
  Sex: Male

DRUGS (5)
  1. ROTAVIRUS VACCINE [Suspect]
     Active Substance: HUMAN ROTAVIRUS A
     Dosage: UNK
     Route: 048
  2. OBSTINOL [Suspect]
     Active Substance: CALCIUM PANTOTHENATE\DANTHRON
     Dosage: UNK (TAKEN POSTPARTUM BY THE MOTHER)
     Route: 063
  3. IBUPROFEN. [Suspect]
     Active Substance: IBUPROFEN
     Dosage: 400 MG, EVERY 12 HOURS, FOR ABOUT 3?4 DAYS
     Route: 064
  4. BOCKSHORNKLEE [Suspect]
     Active Substance: FENUGREEK LEAF\HERBALS
     Dosage: UNK, 3X/DAY (APPROXIMATELY 2?3 WEEKS BEFORE BIRTH)
     Route: 064
  5. MACROGOL [Suspect]
     Active Substance: POLYETHYLENE GLYCOLS
     Dosage: UNK (TAKEN POSTPARTUM BY THE MOTHER)
     Route: 063

REACTIONS (6)
  - Liver injury [Unknown]
  - Exposure via breast milk [Unknown]
  - Foetal exposure during pregnancy [Unknown]
  - Cholestasis [Unknown]
  - Hypovitaminosis [Unknown]
  - Transaminases increased [Recovered/Resolved]

NARRATIVE: CASE EVENT DATE: 2020
